FAERS Safety Report 7564989-4 (Version None)
Quarter: 2011Q2

REPORT INFORMATION
  Report Type: 
  Country: None (occurrence: None)
  Receive Date: 20110622
  Receipt Date: 20110405
  Transmission Date: 20111010
  Serious: Yes (Other)
  Sender: FDA-Public Use
  Company Number: US-MYLANLABS-2011S1005706

PATIENT
  Age: 23 Year
  Sex: Male

DRUGS (5)
  1. SEROQUEL [Concomitant]
  2. DEPAKOTE ER [Concomitant]
  3. TOPAMAX [Concomitant]
  4. CLOZAPINE [Suspect]
     Indication: SCHIZOAFFECTIVE DISORDER
     Dates: end: 20110318
  5. INVEGA [Concomitant]

REACTIONS (1)
  - GRANULOCYTOPENIA [None]
